FAERS Safety Report 24926655 (Version 2)
Quarter: 2025Q3

REPORT INFORMATION
  Report Type: Spontaneous
  Country: US (occurrence: US)
  Receive Date: 20250205
  Receipt Date: 20250806
  Transmission Date: 20251021
  Serious: Yes (Hospitalization, Other)
  Sender: SANOFI AVENTIS
  Company Number: US-SA-2025SA033820

PATIENT
  Age: 73 Year
  Sex: Male
  Weight: 66.82 kg

DRUGS (14)
  1. DUPIXENT [Suspect]
     Active Substance: DUPILUMAB
     Indication: Asthma
     Dosage: 300 MG, QOW
     Route: 058
     Dates: start: 202109, end: 202501
  2. DUPIXENT [Suspect]
     Active Substance: DUPILUMAB
     Dosage: 300 MG, QOW
     Dates: start: 2025
  3. MONTELUKAST SODIUM [Concomitant]
     Active Substance: MONTELUKAST SODIUM
  4. ELIQUIS [Concomitant]
     Active Substance: APIXABAN
  5. TRELEGY ELLIPTA [Concomitant]
     Active Substance: FLUTICASONE FUROATE\UMECLIDINIUM BROMIDE\VILANTEROL TRIFENATATE
  6. LORATADINE [Concomitant]
     Active Substance: LORATADINE
  7. DALIRESP [Concomitant]
     Active Substance: ROFLUMILAST
  8. ASPIRIN [Concomitant]
     Active Substance: ASPIRIN
  9. JARDIANCE [Concomitant]
     Active Substance: EMPAGLIFLOZIN
  10. LISINOPRIL [Concomitant]
     Active Substance: LISINOPRIL
  11. FUROSEMIDE [Concomitant]
     Active Substance: FUROSEMIDE
  12. METOPROLOL SUCCINATE [Concomitant]
     Active Substance: METOPROLOL SUCCINATE
  13. ELIQUIS [Concomitant]
     Active Substance: APIXABAN
  14. DALIRESP [Concomitant]
     Active Substance: ROFLUMILAST

REACTIONS (2)
  - Pneumonia [Not Recovered/Not Resolved]
  - Dyspnoea [Unknown]

NARRATIVE: CASE EVENT DATE: 20250109
